FAERS Safety Report 15651682 (Version 1)
Quarter: 2018Q4

REPORT INFORMATION
  Report Type: Report from Study
  Country: EG (occurrence: EG)
  Receive Date: 20181123
  Receipt Date: 20181123
  Transmission Date: 20190205
  Serious: Yes (Other)
  Sender: FDA-Public Use
  Company Number: PHHY2018EG163477

PATIENT
  Sex: Female
  Weight: 4.2 kg

DRUGS (2)
  1. GILENYA [Suspect]
     Active Substance: FINGOLIMOD HYDROCHLORIDE
     Indication: FOETAL EXPOSURE DURING PREGNANCY
     Dosage: MATERNAL DOSE: 0.5 MG, QD
     Route: 064
  2. METHOTREXATE. [Concomitant]
     Active Substance: METHOTREXATE
     Indication: FOETAL EXPOSURE DURING PREGNANCY
     Dosage: MAATERNAL DOSE: 7.5 MG, QW
     Route: 064

REACTIONS (3)
  - Bone disorder [Unknown]
  - Vomiting [Not Recovered/Not Resolved]
  - Foetal exposure during pregnancy [Unknown]
